FAERS Safety Report 7835549-2 (Version None)
Quarter: 2011Q4

REPORT INFORMATION
  Report Type: 
  Country: None (occurrence: None)
  Receive Date: 20111024
  Receipt Date: 20111012
  Transmission Date: 20120403
  Serious: Yes (Disabling)
  Sender: FDA-Public Use
  Company Number: PHHY2011DK86942

PATIENT
  Sex: Female

DRUGS (13)
  1. ASPIRIN [Concomitant]
  2. LIPITOR [Concomitant]
  3. KODIPAR [Concomitant]
  4. MORPHINE [Concomitant]
  5. POTASSIUM CHLORIDE [Concomitant]
     Dosage: UNK
  6. SYMBICORT [Concomitant]
  7. KININ [Concomitant]
  8. LANSOPRAZOLE [Concomitant]
  9. MIRTAZAPINE [Concomitant]
  10. DIURAL [Concomitant]
  11. ONBREZ [Suspect]
     Indication: CHRONIC OBSTRUCTIVE PULMONARY DISEASE
     Dates: start: 20110914, end: 20110922
  12. IMOZOP [Concomitant]
  13. SPIRIVA [Concomitant]

REACTIONS (2)
  - VOMITING [None]
  - NAUSEA [None]
